FAERS Safety Report 9185279 (Version 3)
Quarter: 2013Q2

REPORT INFORMATION
  Report Type: Spontaneous
  Country: AR (occurrence: AR)
  Receive Date: 20130325
  Receipt Date: 20130402
  Transmission Date: 20140414
  Serious: Yes (Hospitalization)
  Sender: FDA-Public Use
  Company Number: PHHY2013AR027310

PATIENT
  Age: 37 Year
  Sex: Male

DRUGS (3)
  1. LAPENAX [Suspect]
     Indication: AUTISM SPECTRUM DISORDER
     Dosage: 350 MG, 1 DAILY
     Route: 048
     Dates: start: 2012, end: 20130320
  2. VALPROIC ACID [Concomitant]
     Dosage: UNK
  3. ALPRAZOLAM [Concomitant]
     Dosage: 3 MG, DAILY

REACTIONS (4)
  - Cerebrovascular accident [Unknown]
  - Pneumonia [Unknown]
  - Neutropenia [Recovered/Resolved]
  - Anaemia [Unknown]
